FAERS Safety Report 14576947 (Version 1)
Quarter: 2018Q1

REPORT INFORMATION
  Report Type: Report from Study
  Country: None (occurrence: US)
  Receive Date: 20180227
  Receipt Date: 20180227
  Transmission Date: 20180509
  Serious: Yes (Other)
  Sender: FDA-Public Use
  Company Number: US-ABBVIE-17K-163-2207376-00

PATIENT
  Sex: Female

DRUGS (1)
  1. HUMIRA [Suspect]
     Active Substance: ADALIMUMAB
     Indication: CROHN^S DISEASE
     Route: 058

REACTIONS (6)
  - Injection site pain [Recovered/Resolved]
  - Twin pregnancy [Unknown]
  - Abortion spontaneous [Unknown]
  - High risk pregnancy [Unknown]
  - Exposure during pregnancy [Unknown]
  - Foetal death [Unknown]
